FAERS Safety Report 19981962 (Version 1)
Quarter: 2021Q4

REPORT INFORMATION
  Report Type: Spontaneous
  Country: PT (occurrence: PT)
  Receive Date: 20211022
  Receipt Date: 20211022
  Transmission Date: 20220303
  Serious: Yes (Hospitalization, Other)
  Sender: FDA-Public Use
  Company Number: PT-AMGEN-PRTSP2021152083

PATIENT
  Age: 56 Year
  Sex: Male
  Weight: 89.8 kg

DRUGS (10)
  1. IRINOTECAN [Suspect]
     Active Substance: IRINOTECAN
     Indication: Colorectal cancer metastatic
     Dosage: 340 MILLIGRAM (EVERY 15 DAYS)
     Route: 042
     Dates: start: 20210901, end: 20210901
  2. OXALIPLATIN [Suspect]
     Active Substance: OXALIPLATIN
     Indication: Colorectal cancer metastatic
     Dosage: 1 UNK (EVERY 2 WEEK) (Q2WK)
     Route: 042
     Dates: start: 20200811, end: 20210216
  3. BEVACIZUMAB [Suspect]
     Active Substance: BEVACIZUMAB
     Indication: Colorectal cancer metastatic
     Dosage: 1 UNK (EVERY 2 WEEK) (Q2WK)
     Route: 042
     Dates: start: 20200811, end: 20210216
  4. LEUCOVORIN [Suspect]
     Active Substance: LEUCOVORIN
     Indication: Product used for unknown indication
     Dosage: 1 UNK (EVERY 2 WEEK) (Q2WK)
     Route: 042
     Dates: start: 20200811, end: 20210216
  5. LEUCOVORIN [Suspect]
     Active Substance: LEUCOVORIN
     Indication: Colorectal cancer metastatic
     Dosage: 380 MILLIGRAM (EVERY 15 DAYS)
     Route: 042
     Dates: start: 20210901, end: 20210901
  6. FLUOROURACIL [Suspect]
     Active Substance: FLUOROURACIL
     Indication: Product used for unknown indication
     Dosage: 1 UNK (EVERY 2 WEEK) (Q2WK)
     Route: 040
     Dates: start: 20200811, end: 20210216
  7. FLUOROURACIL [Suspect]
     Active Substance: FLUOROURACIL
     Indication: Colorectal cancer metastatic
     Dosage: 760 MILLIGRAM (EVERY 15 DAYS)
     Route: 040
     Dates: start: 20210901, end: 20210901
  8. FLUOROURACIL [Suspect]
     Active Substance: FLUOROURACIL
     Indication: Product used for unknown indication
     Dosage: 1 UNK (EVERY 2 WEEK) (Q2WK)
     Route: 041
     Dates: start: 20200811, end: 20210216
  9. FLUOROURACIL [Suspect]
     Active Substance: FLUOROURACIL
     Indication: Colorectal cancer metastatic
     Dosage: 4500 MILLIGRAM (EVERY 15 DAYS)
     Route: 041
     Dates: start: 20210901, end: 20210901
  10. PANITUMUMAB [Suspect]
     Active Substance: PANITUMUMAB
     Indication: Colorectal cancer metastatic
     Dosage: 480 MILLIGRAM (EVERY 15 DAYS)
     Route: 042
     Dates: start: 20210901, end: 20210901

REACTIONS (2)
  - Colorectal cancer [Unknown]
  - Colitis [Recovered/Resolved]

NARRATIVE: CASE EVENT DATE: 20210911
